FAERS Safety Report 8791999 (Version 2)
Quarter: 2012Q4

REPORT INFORMATION
  Report Type: 
  Country: BR (occurrence: BR)
  Receive Date: 20120918
  Receipt Date: 20121009
  Transmission Date: 20130627
  Serious: Yes (Other)
  Sender: FDA-Public Use
  Company Number: BR-PFIZER INC-2012211017

PATIENT
  Sex: Female

DRUGS (1)
  1. FARLUTAL [Suspect]
     Indication: AMENORRHOEA
     Dosage: 10 mg, once daily
     Route: 048
     Dates: start: 20120801, end: 20120805

REACTIONS (4)
  - Haemorrhage in pregnancy [Unknown]
  - Pelvic pain [Not Recovered/Not Resolved]
  - Vomiting [Not Recovered/Not Resolved]
  - Breast discharge [Not Recovered/Not Resolved]
